FAERS Safety Report 17010466 (Version 1)
Quarter: 2019Q4

REPORT INFORMATION
  Report Type: Spontaneous
  Country: US (occurrence: US)
  Receive Date: 20190930
  Receipt Date: 20190930
  Transmission Date: 20200122
  Serious: Yes (Hospitalization)
  Sender: FDA-Public Use
  Company Number: None

PATIENT
  Age: 56 Year
  Sex: Female

DRUGS (13)
  1. HYDROXYZ HCI TAB 50 ER [Concomitant]
  2. IDOCAINE OIN 5% [Concomitant]
  3. METFORMIN TAB 500 MG ER [Concomitant]
  4. METHOTREXATE TAB 2.5MG [Concomitant]
     Active Substance: METHOTREXATE
  5. PREDNISONE TAB 10 MG [Concomitant]
  6. HUMIRA [Suspect]
     Active Substance: ADALIMUMAB
     Indication: RHEUMATOID ARTHRITIS
     Dosage: ?          OTHER FREQUENCY:EVERY 2 WEEKS;?
     Route: 058
     Dates: start: 20190709
  7. LIZENIDINE TAB 4MG [Concomitant]
  8. DULOXETINE CAP 80MG [Concomitant]
  9. FOLIC ACID TAB 1000 MCG [Concomitant]
  10. LYRICA CAP 50MG [Concomitant]
  11. DICLOFENAC TAB 50 MG ER [Concomitant]
  12. OXYCODONE TAB 10 MG [Concomitant]
  13. PREGABALIN CAP 50MG [Concomitant]

REACTIONS (5)
  - Incorrect dose administered [None]
  - Injection site reaction [None]
  - Infection [None]
  - Rash [None]
  - Headache [None]
